FAERS Safety Report 13836237 (Version 3)
Quarter: 2021Q4

REPORT INFORMATION
  Report Type: Report from Study
  Country: US (occurrence: US)
  Receive Date: 20170804
  Receipt Date: 20211220
  Transmission Date: 20220303
  Serious: Yes (Death, Hospitalization, Other)
  Sender: FDA-Public Use
  Company Number: US-PFIZER INC-2017336765

PATIENT
  Age: 78 Year
  Sex: Male
  Weight: 66 kg

DRUGS (1)
  1. PALBOCICLIB [Suspect]
     Active Substance: PALBOCICLIB
     Indication: Prostate cancer
     Dosage: 125 MG, CYCLE: 28 DAYS, QD FOR 21 DAYS
     Route: 048
     Dates: start: 20160815, end: 20160828

REACTIONS (7)
  - Dehydration [Unknown]
  - Neutrophil count decreased [Unknown]
  - White blood cell count decreased [Unknown]
  - Platelet count decreased [Unknown]
  - Neoplasm progression [Fatal]
  - Blood alkaline phosphatase increased [Unknown]
  - Muscular weakness [Unknown]

NARRATIVE: CASE EVENT DATE: 20160829
